FAERS Safety Report 25566817 (Version 1)
Quarter: 2025Q3

REPORT INFORMATION
  Report Type: Report from Study
  Country: US (occurrence: US)
  Receive Date: 20250716
  Receipt Date: 20250716
  Transmission Date: 20251020
  Serious: Yes (Other)
  Sender: BAYER HEALTHCARE LLC
  Company Number: US-BAYER-2025A091127

PATIENT
  Age: 5 Decade

DRUGS (1)
  1. BAYER RAPID RELIEF [Suspect]
     Active Substance: ASPIRIN\CAFFEINE
     Indication: Pain
     Route: 048

REACTIONS (2)
  - Foreign body aspiration [Recovered/Resolved]
  - Cough [Recovered/Resolved]
